FAERS Safety Report 4536637-9 (Version None)
Quarter: 2004Q4

REPORT INFORMATION
  Report Type: 
  Country: None (occurrence: None)
  Receive Date: 20041220
  Receipt Date: 20041207
  Transmission Date: 20050328
  Serious: Yes (Hospitalization, Other)
  Sender: FDA-Public Use
  Company Number: HQWYE334010NOV04

PATIENT
  Age: 63 Year
  Sex: Male
  Weight: 63.4 kg

DRUGS (22)
  1. RAPAMUNE [Suspect]
     Indication: PROPHYLAXIS AGAINST TRANSPLANT REJECTION
     Dosage: SEE IMAGE
     Route: 048
     Dates: start: 20040824, end: 20040101
  2. RAPAMUNE [Suspect]
     Indication: PROPHYLAXIS AGAINST TRANSPLANT REJECTION
     Dosage: SEE IMAGE
     Route: 048
     Dates: start: 20040101
  3. CELLCEPT [Concomitant]
  4. PREDNISONE [Concomitant]
  5. BACTRIM DS [Concomitant]
  6. GLYBURIDE [Concomitant]
  7. GLUCOPHAGE [Concomitant]
  8. MULTIVITAMINS, PLAIN (MULTIVITAMINS, PLAIN) [Concomitant]
  9. ATENOLOL [Concomitant]
  10. TOPAMAX [Concomitant]
  11. ASPIRIN [Concomitant]
  12. AMBIEN [Concomitant]
  13. FLOVENT [Concomitant]
  14. LIPITOR [Concomitant]
  15. TUMS (CALCIUM CARBONATE/MAGNESIUM CARBONATE/MAGNESIUM TRISILICATE) [Concomitant]
  16. NEXIUM [Concomitant]
  17. ENDOCET (OXYCODONE HYDROCHLORIDE/PARACETAMOL) [Concomitant]
  18. PLAVIX [Concomitant]
  19. BUSPAR [Concomitant]
  20. PAXIL [Concomitant]
  21. KLONOPIN [Concomitant]
  22. CLARINEX [Concomitant]

REACTIONS (12)
  - BLOOD ALBUMIN INCREASED [None]
  - BLOOD ALKALINE PHOSPHATASE INCREASED [None]
  - BLOOD BICARBONATE DECREASED [None]
  - BLOOD BILIRUBIN INCREASED [None]
  - BLOOD GLUCOSE INCREASED [None]
  - BLOOD POTASSIUM INCREASED [None]
  - BLOOD SODIUM DECREASED [None]
  - DEHYDRATION [None]
  - DIVERTICULUM [None]
  - HAEMORRHOIDS [None]
  - MARKEDLY REDUCED DIETARY INTAKE [None]
  - RENAL FAILURE ACUTE [None]
